FAERS Safety Report 15140494 (Version 1)
Quarter: 2018Q3

REPORT INFORMATION
  Report Type: Spontaneous
  Country: US (occurrence: US)
  Receive Date: 20180713
  Receipt Date: 20180713
  Transmission Date: 20181010
  Serious: No
  Sender: FDA-Public Use
  Company Number: US-ASTRAZENECA-2018SE78252

PATIENT
  Age: 54 Year
  Sex: Female

DRUGS (7)
  1. COZAAR [Concomitant]
     Active Substance: LOSARTAN POTASSIUM
     Route: 048
  2. AZELASTINE HYDROCHLORIDE. [Concomitant]
     Active Substance: AZELASTINE HYDROCHLORIDE
     Dosage: 137 MCG/SPRAY, 2 SOLUTION DAILY
     Route: 045
  3. FLUTICASONE. [Concomitant]
     Active Substance: FLUTICASONE
     Dosage: 50 MCG, TWO SPRAY SUSPENSION, TWICE A DAY
  4. SYMBICORT [Suspect]
     Active Substance: BUDESONIDE\FORMOTEROL FUMARATE DIHYDRATE
     Dosage: 160?4.5 MCG, TWO INHALATIONS, TWO TIMES A DAY
     Route: 055
  5. NOVOLIN [Concomitant]
     Active Substance: INSULIN HUMAN
     Dosage: 70/30, TWICE DAILY
     Route: 058
  6. IPRATROPIUM BROMIDE. [Concomitant]
     Active Substance: IPRATROPIUM BROMIDE
     Dosage: 1 SOLUTION, THREE TIMES A DAY
  7. PROAIR RESPICLICK [Concomitant]
     Active Substance: ALBUTEROL SULFATE
     Dosage: 90 MCG, 2 AEROSOL FOUR TIMES A DAY
     Route: 055

REACTIONS (9)
  - Dysphonia [Unknown]
  - Snoring [Unknown]
  - Sleep apnoea syndrome [Unknown]
  - Fatigue [Unknown]
  - Asthma [Unknown]
  - Middle insomnia [Unknown]
  - Gastrooesophageal reflux disease [Unknown]
  - Senile osteoporosis [Unknown]
  - Essential hypertension [Unknown]
